FAERS Safety Report 9159381 (Version 1)
Quarter: 2013Q1

REPORT INFORMATION
  Report Type: Spontaneous
  Country: JP (occurrence: None)
  Receive Date: 20130212
  Receipt Date: 20130212
  Transmission Date: 20140127
  Serious: Yes (Disabling, Other)
  Sender: FDA-Public Use
  Company Number: TPA2013A01086

PATIENT
  Age: 53 Year
  Sex: Male

DRUGS (2)
  1. FEBURIC (FEBUXOSTAT) [Suspect]
     Route: 048
     Dates: start: 20121018, end: 20130103
  2. DIOVAN (VALSARTAN) [Concomitant]

REACTIONS (3)
  - Tendon pain [None]
  - Myalgia [None]
  - Activities of daily living impaired [None]
